FAERS Safety Report 20046115 (Version 2)
Quarter: 2021Q4

REPORT INFORMATION
  Report Type: Spontaneous
  Country: US (occurrence: US)
  Receive Date: 20211108
  Receipt Date: 20211115
  Transmission Date: 20220303
  Serious: Yes (Other)
  Sender: FDA-Public Use
  Company Number: US-HORIZON THERAPEUTICS-HZN-2021-008388

PATIENT

DRUGS (2)
  1. TEPEZZA [Suspect]
     Active Substance: TEPROTUMUMAB-TRBW
     Indication: Product used for unknown indication
     Dosage: UNK
     Route: 065
  2. TEPEZZA [Suspect]
     Active Substance: TEPROTUMUMAB-TRBW
     Dosage: 7TH INFUSION
     Route: 065

REACTIONS (10)
  - Diabetes mellitus [Unknown]
  - Gastrointestinal disorder [Unknown]
  - Asthenia [Unknown]
  - Alopecia [Unknown]
  - Dry skin [Unknown]
  - Fatigue [Unknown]
  - Drug ineffective [Unknown]
  - Condition aggravated [Unknown]
  - Visual impairment [Unknown]
  - Diplopia [Unknown]
